FAERS Safety Report 24105965 (Version 4)
Quarter: 2024Q4

REPORT INFORMATION
  Report Type: Spontaneous
  Country: HU (occurrence: HU)
  Receive Date: 20240717
  Receipt Date: 20241203
  Transmission Date: 20250114
  Serious: Yes (Hospitalization)
  Sender: BIOGEN
  Company Number: HU-BIOGEN-2024BI01273522

PATIENT
  Age: 79 Year
  Sex: Female

DRUGS (7)
  1. TOFERSEN [Suspect]
     Active Substance: TOFERSEN
     Indication: Amyotrophic lateral sclerosis
     Route: 050
     Dates: start: 20240212, end: 20240614
  2. TOFERSEN [Suspect]
     Active Substance: TOFERSEN
     Route: 050
     Dates: start: 20240906
  3. PERINDOPRIL ARGININE [Concomitant]
     Active Substance: PERINDOPRIL ARGININE
     Indication: Product used for unknown indication
     Route: 050
  4. NEBIVOLOL [Concomitant]
     Active Substance: NEBIVOLOL
     Indication: Product used for unknown indication
     Route: 050
  5. SCLEFIC [Concomitant]
     Indication: Amyotrophic lateral sclerosis
     Dosage: 2X50MG
     Route: 050
     Dates: start: 20240719
  6. ESOMEPRAZOLE [Concomitant]
     Active Substance: ESOMEPRAZOLE
     Indication: Product used for unknown indication
     Dosage: 2X40MG
     Route: 050
  7. Neo-Ferro-Folgamma [Concomitant]
     Indication: Product used for unknown indication
     Route: 050

REACTIONS (1)
  - Pneumonia [Recovered/Resolved]

NARRATIVE: CASE EVENT DATE: 20240708
